FAERS Safety Report 5211853-1 (Version None)
Quarter: 2007Q1

REPORT INFORMATION
  Report Type: 
  Country: None (occurrence: None)
  Receive Date: 20070116
  Receipt Date: 20070116
  Transmission Date: 20070707
  Serious: No
  Sender: FDA-Public Use
  Company Number: None

PATIENT
  Age: 44 Year
  Sex: Female

DRUGS (3)
  1. SERTRALINE [Suspect]
     Indication: BIPOLAR I DISORDER
     Dosage: 200MG PO QD
     Route: 048
     Dates: start: 20061101
  2. DEPAKOTE [Concomitant]
  3. TRAZODONE HCL [Concomitant]

REACTIONS (3)
  - ALOPECIA [None]
  - DIARRHOEA [None]
  - NAUSEA [None]
